FAERS Safety Report 8065752-0 (Version None)
Quarter: 2012Q1

REPORT INFORMATION
  Report Type: 
  Country: None (occurrence: None)
  Receive Date: 20120117
  Receipt Date: 20120102
  Transmission Date: 20120608
  Serious: Yes (Life-Threatening, Other)
  Sender: FDA-Public Use
  Company Number: 2011PV000065

PATIENT
  Age: 58 Year
  Sex: Male
  Weight: 88 kg

DRUGS (16)
  1. PANTOPRAZOLE SODIUM [Concomitant]
  2. NOVABAN [Concomitant]
  3. DULCOLAX [Concomitant]
  4. DIPIDOLOR [Concomitant]
  5. KLYSMOL [Concomitant]
  6. FOLSAN [Concomitant]
  7. LOVENOX [Concomitant]
  8. STRUCTOKABIVEN /05981101/ [Concomitant]
  9. DICLOBENE [Concomitant]
  10. DEPOCYT [Suspect]
     Indication: NEOPLASM
     Dosage: 50 MG;QOW;IT
     Route: 038
     Dates: start: 20111116, end: 20111130
  11. MYOSTATIN [Concomitant]
  12. CAL D VITA [Concomitant]
  13. HYDROMORPHONE HCL [Concomitant]
  14. ZANTAC [Concomitant]
  15. SCOPOLAMINE [Concomitant]
  16. SERACTIL [Concomitant]

REACTIONS (15)
  - POSTURING [None]
  - VOMITING [None]
  - ALTERED STATE OF CONSCIOUSNESS [None]
  - BRAIN OEDEMA [None]
  - INTRACRANIAL PRESSURE INCREASED [None]
  - APHASIA [None]
  - DISORIENTATION [None]
  - SPEECH DISORDER [None]
  - DISEASE PROGRESSION [None]
  - COMA [None]
  - PLEOCYTOSIS [None]
  - RESTLESSNESS [None]
  - HALLUCINATION [None]
  - BODY TEMPERATURE INCREASED [None]
  - HEMIPARESIS [None]
